FAERS Safety Report 24270548 (Version 2)
Quarter: 2025Q1

REPORT INFORMATION
  Report Type: Spontaneous
  Country: US (occurrence: US)
  Receive Date: 20240831
  Receipt Date: 20250219
  Transmission Date: 20250409
  Serious: No
  Sender: GLAXOSMITHKLINE
  Company Number: US-GSK-US2024104491

PATIENT
  Age: 58 Year
  Sex: Female

DRUGS (1)
  1. NUCALA [Suspect]
     Active Substance: MEPOLIZUMAB
     Indication: Hypereosinophilic syndrome
     Dosage: 300 MG, MO
     Route: 058
     Dates: start: 2024

REACTIONS (9)
  - Ear, nose and throat disorder [Unknown]
  - Gait disturbance [Unknown]
  - Lacrimation increased [Unknown]
  - Vision blurred [Unknown]
  - Feeling cold [Unknown]
  - Tremor [Unknown]
  - Dysphagia [Unknown]
  - Mobility decreased [Unknown]
  - Product dose omission issue [Not Recovered/Not Resolved]

NARRATIVE: CASE EVENT DATE: 20240601
